FAERS Safety Report 5255159-3 (Version None)
Quarter: 2007Q1

REPORT INFORMATION
  Report Type: 
  Country: None (occurrence: None)
  Receive Date: 20070305
  Receipt Date: 20070227
  Transmission Date: 20070707
  Serious: Yes (Death)
  Sender: FDA-Public Use
  Company Number: GB-AVENTIS-200711855GDDC

PATIENT
  Age: 70 Year
  Sex: Female

DRUGS (5)
  1. RIFAMPICIN [Suspect]
     Route: 048
     Dates: start: 20060721, end: 20060810
  2. TRIMETHOPRIM [Suspect]
     Route: 048
     Dates: start: 20060721, end: 20060810
  3. CEFUROXIME [Concomitant]
     Indication: SHOULDER OPERATION
     Route: 042
     Dates: start: 20060704, end: 20060713
  4. FLUCLOXACILLIN [Concomitant]
     Route: 048
     Dates: start: 20060717, end: 20060720
  5. VANCOMYCIN HYDROCHLORIDE [Concomitant]
     Route: 042
     Dates: start: 20060724, end: 20060731

REACTIONS (1)
  - PNEUMONIA [None]
